FAERS Safety Report 6737797-1 (Version None)
Quarter: 2010Q2

REPORT INFORMATION
  Report Type: 
  Country: None (occurrence: None)
  Receive Date: 20100524
  Receipt Date: 20100512
  Transmission Date: 20101027
  Serious: Yes (Other)
  Sender: FDA-Public Use
  Company Number: US-BAYER-201018717NA

PATIENT
  Age: 56 Year
  Sex: Female

DRUGS (16)
  1. MAGNEVIST [Suspect]
     Indication: IMAGING PROCEDURE
  2. OMNISCAN [Suspect]
     Indication: IMAGING PROCEDURE
  3. OPTIMARK [Suspect]
     Indication: IMAGING PROCEDURE
  4. MULTIHANCE [Suspect]
     Indication: IMAGING PROCEDURE
  5. PROHANCE [Suspect]
     Indication: IMAGING PROCEDURE
  6. UNSPECIFIED GADOLINIUM-BASED CONTRAST AGENT [Suspect]
     Indication: NUCLEAR MAGNETIC RESONANCE IMAGING
     Dates: start: 20050628, end: 20050628
  7. UNSPECIFIED GADOLINIUM-BASED CONTRAST AGENT [Suspect]
     Dates: start: 20051209, end: 20051209
  8. UNSPECIFIED GADOLINIUM-BASED CONTRAST AGENT [Suspect]
     Dates: start: 20060511, end: 20060511
  9. UNSPECIFIED GADOLINIUM-BASED CONTRAST AGENT [Suspect]
     Dates: start: 20060919, end: 20060919
  10. RENAGEL [Concomitant]
  11. PREDNISONE TAB [Concomitant]
  12. WARFARIN SODIUM [Concomitant]
  13. ^PENSIPAR^ [Concomitant]
  14. EPOGEN [Concomitant]
  15. IRON/IRON SUPPLEMENTS [Concomitant]
  16. IMMUNOSUPPRESSANTS [Concomitant]

REACTIONS (15)
  - ARTHRALGIA [None]
  - BURNING SENSATION [None]
  - DEFORMITY [None]
  - ERYTHEMA [None]
  - EXFOLIATIVE RASH [None]
  - EXTREMITY CONTRACTURE [None]
  - GENERAL PHYSICAL HEALTH DETERIORATION [None]
  - JOINT STIFFNESS [None]
  - MASS [None]
  - NEPHROGENIC SYSTEMIC FIBROSIS [None]
  - OEDEMA PERIPHERAL [None]
  - PAIN OF SKIN [None]
  - SCAR [None]
  - SKIN DISCOLOURATION [None]
  - SKIN INDURATION [None]
